FAERS Safety Report 19360217 (Version 1)
Quarter: 2021Q2

REPORT INFORMATION
  Report Type: Spontaneous
  Country: US (occurrence: US)
  Receive Date: 20210601
  Receipt Date: 20210601
  Transmission Date: 20210717
  Serious: Yes (Other)
  Sender: FDA-Public Use
  Company Number: US-ACCORD-226376

PATIENT
  Age: 56 Year
  Sex: Female

DRUGS (1)
  1. FLUOROURACIL. [Suspect]
     Active Substance: FLUOROURACIL
     Indication: COLORECTAL CANCER

REACTIONS (5)
  - Pericarditis [Recovering/Resolving]
  - Sinus tachycardia [Recovering/Resolving]
  - Electrocardiogram ST segment elevation [Recovering/Resolving]
  - Cardiotoxicity [Recovering/Resolving]
  - Electrocardiogram PR segment depression [Recovering/Resolving]
